FAERS Safety Report 10216995 (Version 1)
Quarter: 2014Q2

REPORT INFORMATION
  Report Type: Spontaneous
  Country: IT (occurrence: IT)
  Receive Date: 20140604
  Receipt Date: 20140604
  Transmission Date: 20141212
  Serious: Yes (Other)
  Sender: FDA-Public Use
  Company Number: IT-ASTRAZENECA-2014SE36345

PATIENT
  Age: 94 Year
  Sex: Female

DRUGS (5)
  1. SEROQUEL [Suspect]
     Route: 048
     Dates: start: 20140207, end: 20140207
  2. LORAZEPAM [Suspect]
     Route: 048
     Dates: start: 20140207, end: 20140207
  3. TIKLID [Concomitant]
  4. LASIX [Concomitant]
  5. BISOPROLOL [Concomitant]

REACTIONS (2)
  - Somnolence [Recovered/Resolved]
  - Wrong patient received medication [Unknown]
